FAERS Safety Report 6918094-8 (Version None)
Quarter: 2010Q3

REPORT INFORMATION
  Report Type: 
  Country: None (occurrence: None)
  Receive Date: 20100806
  Receipt Date: 20100723
  Transmission Date: 20110219
  Serious: Yes (Other)
  Sender: FDA-Public Use
  Company Number: GER/UKI/10/0014567

PATIENT
  Age: 63 Year
  Weight: 80 kg

DRUGS (6)
  1. FEXOFENADINE HCL [Suspect]
     Indication: PRODUCT USED FOR UNKNOWN INDICATION
     Dosage: 180 MG, 1 IN 1 D
  2. ALLOPURINOL [Suspect]
     Indication: GOUT
     Dosage: 300 MG, 1 IN 1 D, ORAL
     Route: 048
     Dates: start: 20100706
  3. ALFACALCIDOL (ALFACALCIDOL) [Concomitant]
  4. AMLODIPINE [Concomitant]
  5. LISINOPRIL [Concomitant]
  6. TEARS NATURALE (DEXTRAN) [Concomitant]

REACTIONS (5)
  - OEDEMA MOUTH [None]
  - ORAL PAIN [None]
  - RASH [None]
  - STEVENS-JOHNSON SYNDROME [None]
  - SWELLING FACE [None]
